FAERS Safety Report 9526387 (Version 2)
Quarter: 2013Q3

REPORT INFORMATION
  Report Type: Spontaneous
  Country: BR (occurrence: BR)
  Receive Date: 20130916
  Receipt Date: 20130923
  Transmission Date: 20140515
  Serious: Yes (Other)
  Sender: FDA-Public Use
  Company Number: BR-ELI_LILLY_AND_COMPANY-BR201309001484

PATIENT
  Age: 92 Year
  Sex: Female
  Weight: 45 kg

DRUGS (10)
  1. HUMALOG MIX 25 [Suspect]
     Indication: TYPE 2 DIABETES MELLITUS
     Dosage: 10 IU, EACH MORNING
     Route: 058
     Dates: start: 201012
  2. HUMALOG MIX 25 [Suspect]
     Dosage: 8 IU, QD
     Route: 058
     Dates: start: 201012
  3. HUMALOG MIX 25 [Suspect]
     Dosage: 6 IU, EACH EVENING
     Route: 058
     Dates: start: 201012
  4. HUMALOG MIX 25 [Suspect]
     Dosage: UNK
  5. HUMULIN N [Suspect]
     Indication: TYPE 2 DIABETES MELLITUS
     Dosage: 6 IU, EACH MORNING
     Route: 058
     Dates: start: 20130810, end: 20130830
  6. HUMULIN N [Suspect]
     Dosage: 5 IU, QD
     Route: 058
     Dates: start: 20130810, end: 20130830
  7. HUMULIN N [Suspect]
     Dosage: 4 IU, EACH EVENING
     Route: 058
     Dates: start: 20130810, end: 20130830
  8. HUMULIN R [Suspect]
     Indication: TYPE 2 DIABETES MELLITUS
     Dosage: 3 IU, EACH MORNING
     Route: 058
     Dates: start: 20130810, end: 20130830
  9. HUMULIN R [Suspect]
     Dosage: 2 IU, QD
     Route: 058
     Dates: start: 20130810, end: 20130830
  10. HUMULIN R [Suspect]
     Dosage: 2 IU, EACH EVENING
     Route: 058
     Dates: start: 20130810, end: 20130830

REACTIONS (5)
  - Arrhythmia [Recovered/Resolved]
  - Nausea [Recovered/Resolved]
  - Vomiting [Recovered/Resolved]
  - Blood pressure abnormal [Recovering/Resolving]
  - Hypersensitivity [Not Recovered/Not Resolved]
